FAERS Safety Report 9199301 (Version 4)
Quarter: 2014Q2

REPORT INFORMATION
  Report Type: Spontaneous
  Country: US (occurrence: US)
  Receive Date: 20130329
  Receipt Date: 20140424
  Transmission Date: 20141212
  Serious: No
  Sender: FDA-Public Use
  Company Number: US-009507513-1303USA011397

PATIENT
  Sex: Male
  Weight: 83.9 kg

DRUGS (2)
  1. PROPECIA [Suspect]
     Indication: ANDROGENETIC ALOPECIA
     Dosage: 1 MG, QD
     Route: 048
     Dates: start: 20030201, end: 20121228
  2. FINASTERIDE [Suspect]
     Indication: ANDROGENETIC ALOPECIA
     Dosage: 1 MG, UNK

REACTIONS (18)
  - Cognitive disorder [Unknown]
  - Urine abnormality [Unknown]
  - Bladder dysfunction [Unknown]
  - Human immunodeficiency virus transmission [Unknown]
  - Urine flow decreased [Unknown]
  - Nocturia [Unknown]
  - Upper respiratory tract infection [Recovered/Resolved]
  - Leukopenia [Unknown]
  - Sexual dysfunction [Unknown]
  - Erectile dysfunction [Recovered/Resolved]
  - Libido decreased [Unknown]
  - Cellulitis [Unknown]
  - Balanoposthitis [Unknown]
  - Abscess [Unknown]
  - Anogenital warts [Unknown]
  - Haemorrhoids [Unknown]
  - Blood creatinine increased [Not Recovered/Not Resolved]
  - Hyperlipidaemia [Unknown]
